FAERS Safety Report 12413286 (Version 1)
Quarter: 2016Q2

REPORT INFORMATION
  Report Type: Report from Study
  Country: IL (occurrence: IL)
  Receive Date: 20160527
  Receipt Date: 20160527
  Transmission Date: 20160815
  Serious: Yes (Hospitalization)
  Sender: FDA-Public Use
  Company Number: IL-ABBVIE-16K-082-1633516-00

PATIENT
  Sex: Male

DRUGS (3)
  1. METROZIL [Suspect]
     Active Substance: METRONIDAZOLE
     Indication: FISTULA
     Route: 065
     Dates: start: 20160515
  2. HUMIRA [Suspect]
     Active Substance: ADALIMUMAB
     Route: 058
  3. HUMIRA [Suspect]
     Active Substance: ADALIMUMAB
     Indication: CROHN^S DISEASE
     Route: 058
     Dates: start: 20150126

REACTIONS (2)
  - Fistula [Not Recovered/Not Resolved]
  - Asthenia [Unknown]
